FAERS Safety Report 11210993 (Version 1)
Quarter: 2015Q2

REPORT INFORMATION
  Report Type: Spontaneous
  Country: US (occurrence: US)
  Receive Date: 20150623
  Receipt Date: 20150623
  Transmission Date: 20150821
  Serious: No
  Sender: FDA-Public Use
  Company Number: US-ASTRAZENECA-2015SE57426

PATIENT
  Age: 60 Year
  Sex: Female
  Weight: 75 kg

DRUGS (4)
  1. ARIMIDEX [Suspect]
     Active Substance: ANASTROZOLE
     Indication: BREAST CANCER
     Route: 048
     Dates: start: 201301, end: 2013
  2. ARIMIDEX [Suspect]
     Active Substance: ANASTROZOLE
     Indication: BREAST CANCER
     Dosage: AROMASIN, NON AZ PRODUCT, 25 MG ONCE A DAY
     Route: 048
     Dates: start: 201308
  3. PROGESTERONE. [Concomitant]
     Active Substance: PROGESTERONE
  4. IBUPROFEN. [Concomitant]
     Active Substance: IBUPROFEN

REACTIONS (7)
  - Joint swelling [Unknown]
  - Joint crepitation [Unknown]
  - Arthropathy [Unknown]
  - Mobility decreased [Unknown]
  - Fatigue [Unknown]
  - Arthralgia [Unknown]
  - Joint injury [Unknown]
